FAERS Safety Report 6682021-1 (Version None)
Quarter: 2010Q2

REPORT INFORMATION
  Report Type: 
  Country: None (occurrence: None)
  Receive Date: 20100414
  Receipt Date: 20100414
  Transmission Date: 20101027
  Serious: Yes (Other)
  Sender: FDA-Public Use
  Company Number: None

PATIENT
  Age: 66 Year
  Sex: Male
  Weight: 81.6475 kg

DRUGS (1)
  1. ASTELIN [Suspect]
     Indication: HYPERSENSITIVITY
     Dates: start: 20071204, end: 20071222

REACTIONS (1)
  - ARRHYTHMIA [None]
